FAERS Safety Report 8550013 (Version 6)
Quarter: 2014Q1

REPORT INFORMATION
  Report Type: Spontaneous
  Country: US (occurrence: US)
  Receive Date: 20120507
  Receipt Date: 20140115
  Transmission Date: 20141002
  Serious: Yes (Other)
  Sender: FDA-Public Use
  Company Number: US-ASTRAZENECA-2012SE19196

PATIENT
  Age: 68 Year
  Sex: Male
  Weight: 80.7 kg

DRUGS (18)
  1. TOPROL XL [Suspect]
     Indication: HYPERTENSION
     Route: 048
     Dates: start: 1994
  2. TOPROL XL [Suspect]
     Indication: HYPERTENSION
     Route: 048
     Dates: start: 1994
  3. LISINOPRIL [Suspect]
     Route: 048
     Dates: start: 20061120
  4. LISINOPRIL [Suspect]
     Dosage: PRINIVIL, 40 MG, DAILY
     Route: 048
     Dates: start: 20071226
  5. LISINOPRIL [Suspect]
     Dosage: PRINIVIL, 40 MG, DAILY
     Route: 048
     Dates: end: 2013
  6. CRESTOR [Suspect]
     Route: 048
  7. CRESTOR [Suspect]
     Dosage: 10MG ONE IN THE MORNING AND ONE IN THE EVENING
     Route: 048
  8. ZETIA [Concomitant]
     Route: 048
     Dates: start: 20071226
  9. COUMADIN [Concomitant]
     Route: 048
     Dates: start: 20071226
  10. DIGETEK [Concomitant]
     Indication: CARDIOVASCULAR EVENT PROPHYLAXIS
     Route: 048
     Dates: start: 20080602
  11. DIGETEK [Concomitant]
     Indication: CARDIOVASCULAR EVENT PROPHYLAXIS
     Route: 048
     Dates: start: 1994
  12. DIGITOXIN [Concomitant]
     Route: 048
     Dates: start: 20110510
  13. TERAZOSIN HCL [Concomitant]
     Route: 048
     Dates: start: 20110711
  14. DIAZEPAM [Concomitant]
     Indication: RELAXATION THERAPY
     Route: 048
     Dates: start: 20061020
  15. DIAZEPAM [Concomitant]
     Indication: RELAXATION THERAPY
     Route: 048
     Dates: start: 1994
  16. AMOXIL [Concomitant]
     Route: 048
     Dates: start: 20080812, end: 20110822
  17. ASPIRIN [Concomitant]
     Route: 048
  18. VACCINATION FOR TD-DT [Concomitant]

REACTIONS (19)
  - Application site bruise [Recovered/Resolved]
  - Medical device complication [Recovered/Resolved]
  - Prostatitis [Unknown]
  - Road traffic accident [Recovered/Resolved]
  - Cardiac disorder [Unknown]
  - Back pain [Unknown]
  - Type V hyperlipidaemia [Unknown]
  - Rotator cuff syndrome [Unknown]
  - Sinus disorder [Not Recovered/Not Resolved]
  - Nephrolithiasis [Unknown]
  - Gastroenteritis viral [Unknown]
  - Acute sinusitis [Unknown]
  - Cough [Not Recovered/Not Resolved]
  - Lacrimation increased [Not Recovered/Not Resolved]
  - Visual impairment [Not Recovered/Not Resolved]
  - Sneezing [Not Recovered/Not Resolved]
  - Pruritus [Recovered/Resolved]
  - Off label use [Not Recovered/Not Resolved]
  - Drug prescribing error [Unknown]
